FAERS Safety Report 14105653 (Version 5)
Quarter: 2018Q1

REPORT INFORMATION
  Report Type: Report from Study
  Country: JP (occurrence: JP)
  Receive Date: 20171018
  Receipt Date: 20180330
  Transmission Date: 20180508
  Serious: Yes (Hospitalization, Other)
  Sender: FDA-Public Use
  Company Number: JP-BRISTOL-MYERS SQUIBB COMPANY-BMS-2016-029725

PATIENT
  Age: 64 Year
  Sex: Male

DRUGS (2)
  1. NIVOLUMAB [Suspect]
     Active Substance: NIVOLUMAB
     Indication: NON-SMALL CELL LUNG CANCER RECURRENT
     Dosage: 210 MG, 3MG/KG
     Route: 041
     Dates: start: 20160328, end: 20160411
  2. DOCETAXEL. [Suspect]
     Active Substance: DOCETAXEL
     Indication: NON-SMALL CELL LUNG CANCER RECURRENT
     Dosage: 100 MG, UNK
     Route: 065
     Dates: start: 20160510, end: 20161208

REACTIONS (5)
  - Malignant neoplasm progression [Unknown]
  - Pulmonary artery thrombosis [Unknown]
  - Pyrexia [Recovered/Resolved]
  - Rash [Recovered/Resolved]
  - Embolism venous [Recovering/Resolving]

NARRATIVE: CASE EVENT DATE: 2016
